FAERS Safety Report 17481091 (Version 2)
Quarter: 2020Q2

REPORT INFORMATION
  Report Type: Spontaneous
  Country: US (occurrence: US)
  Receive Date: 20200302
  Receipt Date: 20200512
  Transmission Date: 20200713
  Serious: Yes (Life-Threatening, Hospitalization, Other)
  Sender: FDA-Public Use
  Company Number: US-DRREDDYS-USA/USA/20/0120241

PATIENT
  Age: 44 Year
  Sex: Male

DRUGS (6)
  1. DEXAMETHASONE SODIUM PHOSPHATE INJECTION, 4 MG/ML [Suspect]
     Active Substance: DEXAMETHASONE SODIUM PHOSPHATE
     Indication: EVIDENCE BASED TREATMENT
     Route: 042
  2. CEFTRIAXONE. [Concomitant]
     Active Substance: CEFTRIAXONE
     Indication: PRODUCT USED FOR UNKNOWN INDICATION
     Route: 042
  3. VANCOMYCIN [Concomitant]
     Active Substance: VANCOMYCIN
     Indication: EVIDENCE BASED TREATMENT
     Route: 042
  4. ACICLOVIR [Concomitant]
     Active Substance: ACYCLOVIR
     Indication: PRODUCT USED FOR UNKNOWN INDICATION
     Route: 042
  5. CHOLECALCIFEROL [Concomitant]
     Active Substance: CHOLECALCIFEROL
     Indication: VITAMIN D DEFICIENCY
     Route: 065
  6. VENLAFAXINE HYDROCHLORIDE. [Concomitant]
     Active Substance: VENLAFAXINE HYDROCHLORIDE
     Indication: DEPRESSION
     Route: 065

REACTIONS (14)
  - Colitis [Recovered/Resolved]
  - Gastritis [Recovered/Resolved]
  - Intestinal obstruction [Recovered/Resolved]
  - Gastric haemorrhage [Recovered/Resolved]
  - Abdominal lymphadenopathy [Recovered/Resolved]
  - Disseminated strongyloidiasis [Recovered/Resolved]
  - Human T-cell lymphotropic virus type I infection [Recovered/Resolved]
  - Helicobacter infection [Recovered/Resolved]
  - Gastrointestinal mucosa hyperaemia [Recovered/Resolved]
  - Duodenitis [Recovered/Resolved]
  - Small intestinal haemorrhage [Recovered/Resolved]
  - Meningitis bacterial [Recovered/Resolved]
  - Enteritis [Recovered/Resolved]
  - Strongyloidiasis [Recovered/Resolved]
